FAERS Safety Report 4650521-1 (Version None)
Quarter: 2005Q2

REPORT INFORMATION
  Report Type: 
  Country: None (occurrence: None)
  Receive Date: 20050502
  Receipt Date: 20050429
  Transmission Date: 20051028
  Serious: Yes (Hospitalization)
  Sender: FDA-Public Use
  Company Number: FR-MERCK-0504FRA00098

PATIENT
  Age: 15 Year
  Sex: Male
  Weight: 50 kg

DRUGS (18)
  1. CANCIDAS [Suspect]
     Indication: ASPERGILLOSIS
     Route: 042
     Dates: start: 20050216
  2. ALPRAZOLAM [Suspect]
     Indication: ANXIETY
     Route: 048
  3. METRONIDAZOLE [Suspect]
     Route: 051
  4. VORICONAZOLE [Suspect]
     Indication: ASPERGILLOSIS
     Route: 048
     Dates: start: 20050216
  5. ZOLPIDEM TARTRATE [Suspect]
     Indication: INSOMNIA
     Route: 048
  6. SULFAMETHOXAZOLE AND TRIMETHOPRIM [Suspect]
     Route: 048
  7. LEVOCARNITINE [Concomitant]
     Route: 065
  8. LISINOPRIL [Concomitant]
     Route: 065
  9. DOMPERIDONE [Concomitant]
     Route: 065
  10. OMEPRAZOLE [Concomitant]
     Route: 065
  11. METOCLOPRAMIDE HYDROCHLORIDE [Concomitant]
     Route: 065
  12. PHLOROGLUCINOL AND TRIMETHYLPHLOROGLUCINOL [Concomitant]
     Route: 065
  13. PYRIDOXINE [Concomitant]
     Route: 065
  14. THIAMINE [Concomitant]
     Route: 065
  15. VITAMINS (UNSPECIFIED) [Concomitant]
     Route: 065
  16. MINERALS (UNSPECIFIED) [Concomitant]
     Route: 065
  17. CALCIUM LEVOFOLINATE [Concomitant]
     Route: 065
  18. [THERAPY UNSPECIFIED] [Concomitant]
     Route: 065

REACTIONS (3)
  - NEUROPATHY PERIPHERAL [None]
  - OEDEMA PERIPHERAL [None]
  - PARAESTHESIA [None]
